FAERS Safety Report 21094883 (Version 1)
Quarter: 2022Q3

REPORT INFORMATION
  Report Type: Spontaneous
  Country: GB (occurrence: GB)
  Receive Date: 20220718
  Receipt Date: 20220718
  Transmission Date: 20221026
  Serious: Yes (Life-Threatening, Hospitalization, Other)
  Sender: FDA-Public Use
  Company Number: None

PATIENT
  Age: 56 Year
  Sex: Male

DRUGS (6)
  1. PAXLOVID [Suspect]
     Active Substance: NIRMATRELVIR\RITONAVIR
     Indication: COVID-19 treatment
     Dosage: [PF-07321332 300 MG]/[RITONAVIR 100 MG]; 2X/DAY
     Route: 048
     Dates: start: 20220614, end: 20220619
  2. BECLOMETHASONE DIPROPIONATE [Concomitant]
     Active Substance: BECLOMETHASONE DIPROPIONATE
     Indication: Asthma
     Dosage: 200 UG, 2X/DAY
     Route: 055
     Dates: end: 20220622
  3. CANNABIDIOL [Concomitant]
     Active Substance: CANNABIDIOL
     Indication: Colitis ulcerative
     Dosage: UNK (AS NECESSARY)
     Route: 055
     Dates: end: 20220622
  4. INFLIXIMAB [Concomitant]
     Active Substance: INFLIXIMAB
     Indication: Colitis ulcerative
     Dosage: 475 MG, WEEKLY
     Route: 042
     Dates: end: 20220622
  5. AZATHIOPRINE [Concomitant]
     Active Substance: AZATHIOPRINE
     Indication: Colitis ulcerative
     Dosage: 175 MG, 1X/DAY
     Route: 048
     Dates: end: 20220622
  6. DULOXETINE [Concomitant]
     Active Substance: DULOXETINE
     Indication: Depression
     Dosage: 600 MG, 2X/DAY
     Route: 048
     Dates: end: 20220622

REACTIONS (2)
  - Haemorrhage intracranial [Not Recovered/Not Resolved]
  - Intraventricular haemorrhage [Not Recovered/Not Resolved]

NARRATIVE: CASE EVENT DATE: 20220622
